APPROVED DRUG PRODUCT: DAPTOMYCIN IN 0.9% SODIUM CHLORIDE
Active Ingredient: DAPTOMYCIN
Strength: 500MG/50ML (10MG/ML)
Dosage Form/Route: SOLUTION;INTRAVENOUS
Application: N213645 | Product #003
Applicant: BAXTER HEALTHCARE CORP
Approved: Feb 27, 2023 | RLD: Yes | RS: Yes | Type: RX